FAERS Safety Report 8336678-X (Version None)
Quarter: 2012Q2

REPORT INFORMATION
  Report Type: 
  Country: None (occurrence: None)
  Receive Date: 20120504
  Receipt Date: 20120425
  Transmission Date: 20120825
  Serious: Yes (Other)
  Sender: FDA-Public Use
  Company Number: IT-SANOFI-AVENTIS-2012SA030691

PATIENT
  Age: 66 Year
  Sex: Male

DRUGS (1)
  1. CEFOTAXIME SODIUM [Suspect]
     Indication: INFECTION
     Route: 042
     Dates: start: 20120401, end: 20120401

REACTIONS (7)
  - ABDOMINAL PAIN UPPER [None]
  - DRUG INTOLERANCE [None]
  - ABDOMINAL RIGIDITY [None]
  - HYPERHIDROSIS [None]
  - HEART RATE DECREASED [None]
  - LOSS OF CONSCIOUSNESS [None]
  - HYPOTENSION [None]
